FAERS Safety Report 25917946 (Version 1)
Quarter: 2025Q4

REPORT INFORMATION
  Report Type: Spontaneous
  Country: CA (occurrence: CA)
  Receive Date: 20251014
  Receipt Date: 20251014
  Transmission Date: 20260118
  Serious: Yes (Hospitalization, Other)
  Sender: CELLTRION
  Company Number: CA-CELLTRION INC.-2025CA036473

PATIENT

DRUGS (14)
  1. INFLIXIMAB [Suspect]
     Active Substance: INFLIXIMAB
     Indication: Crohn^s disease
     Dosage: 5 MG/KG
     Route: 042
  2. AMLODIPINE BESYLATE [Concomitant]
     Active Substance: AMLODIPINE BESYLATE
     Dosage: 1.0 DOSAGE FORMS
     Route: 065
  3. ASPIRIN [Concomitant]
     Active Substance: ASPIRIN
     Dosage: 1.0 DOSAGE FORMS
     Route: 065
  4. DIOVAN [Concomitant]
     Active Substance: VALSARTAN
     Dosage: 1.0 DOSAGE FORMS
     Route: 065
  5. DOMPERIDONE [Concomitant]
     Active Substance: DOMPERIDONE
     Dosage: 1.0 DOSAGE FORMS
     Route: 065
  6. EFUDEX [Concomitant]
     Active Substance: FLUOROURACIL
     Dosage: 1.0 DOSAGE FORMS
     Route: 061
  7. ENTOCORT [Concomitant]
     Active Substance: BUDESONIDE
     Dosage: 1.0 DOSAGE FORMS (SUSTAINED RELEASE)
     Route: 065
  8. FOLIC ACID [Concomitant]
     Active Substance: FOLIC ACID
     Dosage: 1.0 DOSAGE FORMS
     Route: 065
  9. LOSEC [Concomitant]
     Active Substance: OMEPRAZOLE
     Dosage: 1.0 DOSAGE FORMS
     Route: 065
  10. METFORMIN [Concomitant]
     Active Substance: METFORMIN HYDROCHLORIDE
     Dosage: 1.0 DOSAGE FORMS
     Route: 065
  11. METHOTREXATE [Concomitant]
     Active Substance: METHOTREXATE
     Indication: Crohn^s disease
     Dosage: 15.0 MILLIGRAM
     Route: 048
  12. ROSUVASTATIN CALCIUM [Concomitant]
     Active Substance: ROSUVASTATIN CALCIUM
     Dosage: 1.0 DOSAGE FORMS
     Route: 065
  13. SYNTHROID [Concomitant]
     Active Substance: LEVOTHYROXINE SODIUM
     Dosage: 1.0 DOSAGE FORMS
     Route: 065
  14. CHOLECALCIFEROL [Concomitant]
     Active Substance: CHOLECALCIFEROL
     Dosage: 1.0 DOSAGE FORMS
     Route: 065

REACTIONS (3)
  - Metastases to liver [Unknown]
  - Metastases to lung [Unknown]
  - Oesophageal carcinoma [Unknown]
